FAERS Safety Report 4859926-7 (Version None)
Quarter: 2005Q4

REPORT INFORMATION
  Report Type: 
  Country: None (occurrence: None)
  Receive Date: 20051219
  Receipt Date: 20051107
  Transmission Date: 20060501
  Serious: No
  Sender: FDA-Public Use
  Company Number: US-BRISTOL-MYERS SQUIBB COMPANY-13171749

PATIENT
  Sex: Female

DRUGS (1)
  1. DOVONEX [Suspect]

REACTIONS (3)
  - CONTUSION [None]
  - PSORIASIS [None]
  - SKIN ATROPHY [None]
